FAERS Safety Report 7649970-9 (Version None)
Quarter: 2011Q3

REPORT INFORMATION
  Report Type: 
  Country: None (occurrence: None)
  Receive Date: 20110802
  Receipt Date: 20110722
  Transmission Date: 20111222
  Serious: Yes (Other)
  Sender: FDA-Public Use
  Company Number: GB-TEVA-293888ISR

PATIENT
  Age: 61 Year
  Sex: Female

DRUGS (2)
  1. IFOSFAMIDE [Suspect]
     Indication: SYNOVIAL SARCOMA
  2. DOXORUBICIN HCL [Suspect]
     Indication: SYNOVIAL SARCOMA

REACTIONS (2)
  - HEPATOTOXICITY [None]
  - RENAL IMPAIRMENT [None]
